APPROVED DRUG PRODUCT: CRYSTODIGIN
Active Ingredient: DIGITOXIN
Strength: 0.2MG/ML
Dosage Form/Route: INJECTABLE;INJECTION
Application: A084100 | Product #005
Applicant: ELI LILLY AND CO
Approved: Approved Prior to Jan 1, 1982 | RLD: No | RS: No | Type: DISCN